FAERS Safety Report 8605040 (Version 6)
Quarter: 2015Q1

REPORT INFORMATION
  Report Type: Spontaneous
  Country: US (occurrence: US)
  Receive Date: 20120608
  Receipt Date: 20150117
  Transmission Date: 20150721
  Serious: Yes (Other)
  Sender: FDA-Public Use
  Company Number: US-ASTRAZENECA-2011SE26595

PATIENT
  Age: 69 Year
  Sex: Male
  Weight: 93 kg

DRUGS (49)
  1. SEROQUEL [Suspect]
     Active Substance: QUETIAPINE FUMARATE
     Indication: INSOMNIA
     Dosage: 300 MG DAILY, GENERIC QUETIAPINE FUMARATE
     Route: 048
     Dates: start: 2013, end: 2013
  2. SEROQUEL [Suspect]
     Active Substance: QUETIAPINE FUMARATE
     Indication: MAJOR DEPRESSION
     Dosage: 300 MG DAILY, GENERIC QUETIAPINE FUMARATE
     Route: 048
     Dates: start: 2013, end: 2013
  3. SEROQUEL [Suspect]
     Active Substance: QUETIAPINE FUMARATE
     Indication: INSOMNIA
     Route: 048
     Dates: start: 201304
  4. SEROQUEL [Suspect]
     Active Substance: QUETIAPINE FUMARATE
     Indication: MAJOR DEPRESSION
     Route: 048
     Dates: start: 201304
  5. SEROQUEL [Suspect]
     Active Substance: QUETIAPINE FUMARATE
     Indication: MAJOR DEPRESSION
     Dosage: 1 IN P.M.
     Route: 048
  6. SEROQUEL [Suspect]
     Active Substance: QUETIAPINE FUMARATE
     Indication: INSOMNIA
     Route: 048
     Dates: start: 200909
  7. AMBIEN [Concomitant]
     Active Substance: ZOLPIDEM TARTRATE
  8. MEFFORMIN HCL [Concomitant]
     Indication: DIABETES MELLITUS
     Dosage: 2 IN A.M./ 2 IN P.M.
  9. TAMSULOSIN [Concomitant]
     Active Substance: TAMSULOSIN
     Indication: PROSTATIC DISORDER
     Dosage: 1 IN P.M.
  10. CALCIUM [Concomitant]
     Active Substance: CALCIUM
     Dosage: 1200 MG PLUS D3, 1 IN A.M.
  11. SEROQUEL [Suspect]
     Active Substance: QUETIAPINE FUMARATE
     Indication: SLEEP DISORDER
     Route: 048
     Dates: start: 200909
  12. SEROQUEL [Suspect]
     Active Substance: QUETIAPINE FUMARATE
     Indication: MAJOR DEPRESSION
     Route: 048
     Dates: start: 200909
  13. SEROQUEL [Suspect]
     Active Substance: QUETIAPINE FUMARATE
     Indication: SLEEP DISORDER
     Dosage: 300 MG DAILY, GENERIC QUETIAPINE FUMARATE
     Route: 048
     Dates: start: 2013, end: 2013
  14. SEROQUEL [Suspect]
     Active Substance: QUETIAPINE FUMARATE
     Indication: SLEEP DISORDER
     Route: 048
     Dates: start: 201304
  15. SEROQUEL [Suspect]
     Active Substance: QUETIAPINE FUMARATE
     Indication: INSOMNIA
     Dosage: 1 IN P.M.
     Route: 048
  16. SEROQUEL [Suspect]
     Active Substance: QUETIAPINE FUMARATE
     Indication: SLEEP DISORDER
     Route: 048
     Dates: start: 200909
  17. GABAPENTIN. [Concomitant]
     Active Substance: GABAPENTIN
     Indication: NEUROPATHY PERIPHERAL
     Dosage: 4 IN A.M I1 IN P.M.
  18. SERTRALINE [Concomitant]
     Active Substance: SERTRALINE HYDROCHLORIDE
     Indication: DEPRESSION
     Dosage: 1 IN P.M.
  19. VITAMIN C [Concomitant]
     Active Substance: ASCORBIC ACID
     Dosage: 1000MG, 1 IN A.M.
  20. MAGNESIUM [Concomitant]
     Active Substance: MAGNESIUM
     Dosage: 1 IN A.M.
  21. FISH OIL [Concomitant]
     Active Substance: FISH OIL
     Dosage: 2 A.M./ 2 P.M.
  22. BABY ASPIRIN [Concomitant]
     Active Substance: ASPIRIN
     Dosage: 1 IN A.M.
  23. SEROQUEL [Suspect]
     Active Substance: QUETIAPINE FUMARATE
     Indication: SLEEP DISORDER
     Dosage: 600 MG DAILY, GENERIC QUETIAPINE FUMARATE
     Route: 048
     Dates: start: 201304, end: 201304
  24. SEROQUEL [Suspect]
     Active Substance: QUETIAPINE FUMARATE
     Indication: INSOMNIA
     Route: 048
     Dates: start: 20140115, end: 20140116
  25. SEROQUEL [Suspect]
     Active Substance: QUETIAPINE FUMARATE
     Indication: INSOMNIA
     Dosage: 300 MG DAILY, GENERIC
     Route: 048
  26. PLAVIX [Concomitant]
     Active Substance: CLOPIDOGREL BISULFATE
     Indication: ANTICOAGULANT THERAPY
     Dosage: 1 IN A.M.
  27. LEMIGAN [Concomitant]
     Indication: GLAUCOMA
     Dosage: I DROP IN P.M. ONLY
     Route: 047
  28. SEROQUEL [Suspect]
     Active Substance: QUETIAPINE FUMARATE
     Indication: INSOMNIA
     Route: 048
     Dates: start: 2011
  29. SEROQUEL [Suspect]
     Active Substance: QUETIAPINE FUMARATE
     Indication: SLEEP DISORDER
     Dosage: 1 IN P.M.
     Route: 048
  30. SEROQUEL [Suspect]
     Active Substance: QUETIAPINE FUMARATE
     Indication: SLEEP DISORDER
     Route: 048
     Dates: start: 20140115, end: 20140116
  31. SEROQUEL [Suspect]
     Active Substance: QUETIAPINE FUMARATE
     Indication: MAJOR DEPRESSION
     Dosage: 300 MG, ONCE, FIRST TIME ON FRIDAY NIGHT
     Route: 048
     Dates: start: 20141121
  32. ATORVASTATIN [Concomitant]
     Active Substance: ATORVASTATIN
     Indication: BLOOD CHOLESTEROL ABNORMAL
     Dosage: 1 IN A.M.
  33. JANUVIA [Concomitant]
     Active Substance: SITAGLIPTIN PHOSPHATE
     Indication: DIABETES MELLITUS
     Dosage: 1 IN A.M.
  34. SEROQUEL [Suspect]
     Active Substance: QUETIAPINE FUMARATE
     Indication: INSOMNIA
     Route: 048
     Dates: start: 200909
  35. HYDROCODONEIACETAMINOPHEN [Concomitant]
     Indication: PAIN
     Dosage: 10-325 , 3 IN A.M /2 IN P.M.
  36. SEROQUEL [Suspect]
     Active Substance: QUETIAPINE FUMARATE
     Indication: MAJOR DEPRESSION
     Route: 048
     Dates: start: 2011
  37. SEROQUEL [Suspect]
     Active Substance: QUETIAPINE FUMARATE
     Indication: INSOMNIA
     Dosage: 600 MG DAILY, GENERIC QUETIAPINE FUMARATE
     Route: 048
     Dates: start: 201304, end: 201304
  38. SEROQUEL [Suspect]
     Active Substance: QUETIAPINE FUMARATE
     Indication: INSOMNIA
     Dosage: 300 MG, ONCE, FIRST TIME ON FRIDAY NIGHT
     Route: 048
     Dates: start: 20141121
  39. SEROQUEL [Suspect]
     Active Substance: QUETIAPINE FUMARATE
     Indication: MAJOR DEPRESSION
     Route: 048
     Dates: start: 200909
  40. ALPHAGAN P [Concomitant]
     Active Substance: BRIMONIDINE TARTRATE
     Indication: GLAUCOMA
     Dosage: 1 DROP A.M. + P.M.
     Route: 047
  41. TIMOLOL [Concomitant]
     Active Substance: TIMOLOL
     Indication: GLAUCOMA
     Dosage: 1 DROP A.M. ONLY
     Route: 047
  42. SEROQUEL [Suspect]
     Active Substance: QUETIAPINE FUMARATE
     Indication: SLEEP DISORDER
     Route: 048
     Dates: start: 2011
  43. SEROQUEL [Suspect]
     Active Substance: QUETIAPINE FUMARATE
     Indication: MAJOR DEPRESSION
     Route: 048
     Dates: start: 20140115, end: 20140116
  44. SEROQUEL [Suspect]
     Active Substance: QUETIAPINE FUMARATE
     Indication: SLEEP DISORDER
     Dosage: 300 MG DAILY, GENERIC
     Route: 048
  45. PROSTATE [Concomitant]
     Active Substance: PROSTATE
     Dosage: 1 IN A.M.
     Dates: start: 20140911
  46. VITAMIN D3 [Concomitant]
     Active Substance: CHOLECALCIFEROL
     Dosage: 5,000 UNITS, 1 IN A.M.
  47. SEROQUEL [Suspect]
     Active Substance: QUETIAPINE FUMARATE
     Indication: SLEEP DISORDER
     Dosage: 300 MG, ONCE, FIRST TIME ON FRIDAY NIGHT
     Route: 048
     Dates: start: 20141121
  48. SEROQUEL [Suspect]
     Active Substance: QUETIAPINE FUMARATE
     Indication: MAJOR DEPRESSION
     Dosage: 300 MG DAILY, GENERIC
     Route: 048
  49. SEROQUEL [Suspect]
     Active Substance: QUETIAPINE FUMARATE
     Indication: MAJOR DEPRESSION
     Dosage: 600 MG DAILY, GENERIC QUETIAPINE FUMARATE
     Route: 048
     Dates: start: 201304, end: 201304

REACTIONS (16)
  - Agitation [Unknown]
  - Memory impairment [Recovered/Resolved]
  - Dyskinesia [Recovered/Resolved]
  - Tremor [Recovered/Resolved]
  - Irritability [Unknown]
  - Adverse drug reaction [Recovered/Resolved]
  - Product use issue [Not Recovered/Not Resolved]
  - Insomnia [Unknown]
  - Drug dose omission [Recovered/Resolved]
  - Suicidal behaviour [Unknown]
  - Tardive dyskinesia [Unknown]
  - Diabetes mellitus [Recovered/Resolved]
  - Drug hypersensitivity [Recovered/Resolved]
  - Restlessness [Unknown]
  - Confusional state [Recovered/Resolved]
  - Restlessness [Unknown]

NARRATIVE: CASE EVENT DATE: 2013
